FAERS Safety Report 22119930 (Version 2)
Quarter: 2023Q2

REPORT INFORMATION
  Report Type: Spontaneous
  Country: FR (occurrence: FR)
  Receive Date: 20230321
  Receipt Date: 20230531
  Transmission Date: 20230722
  Serious: No
  Sender: FDA-Public Use
  Company Number: FR-BEH-2023156442

PATIENT
  Age: 67 Year
  Sex: Male
  Weight: 78 kg

DRUGS (19)
  1. PRIVIGEN [Suspect]
     Active Substance: HUMAN IMMUNOGLOBULIN G
     Indication: Hypogammaglobulinaemia
     Dosage: 20 MILLIGRAM, SINGLE
     Route: 042
     Dates: start: 20230228, end: 20230228
  2. ELRANATAMAB [Concomitant]
     Active Substance: ELRANATAMAB
     Indication: Plasma cell myeloma
     Dosage: 12 MILLIGRAM, SINGLE
     Route: 058
     Dates: start: 20221128, end: 20221128
  3. ELRANATAMAB [Concomitant]
     Active Substance: ELRANATAMAB
     Dosage: 32 MILLIGRAM, SINGLE
     Route: 058
     Dates: start: 20221205, end: 20221205
  4. ELRANATAMAB [Concomitant]
     Active Substance: ELRANATAMAB
     Dosage: 76 MILLIGRAM, QW
     Route: 058
     Dates: start: 20221212, end: 20230208
  5. ELRANATAMAB [Concomitant]
     Active Substance: ELRANATAMAB
     Dosage: 76 MILLIGRAM, QW
     Route: 058
     Dates: start: 20230222, end: 20230222
  6. MAGNESIUM CARBONATE [Concomitant]
     Active Substance: MAGNESIUM CARBONATE
     Indication: Paraesthesia
     Dosage: UNK
     Route: 048
     Dates: start: 20230125
  7. SMECTA [Concomitant]
     Active Substance: MONTMORILLONITE
     Indication: Diarrhoea
     Dosage: UNK
     Route: 048
     Dates: start: 202302, end: 20230315
  8. ATOVAQUONE [Concomitant]
     Active Substance: ATOVAQUONE
     Indication: Infection prophylaxis
     Dosage: UNK
     Route: 048
     Dates: start: 20230125
  9. ALMOND OIL\WHITE WAX [Concomitant]
     Active Substance: ALMOND OIL\WHITE WAX
     Indication: Erythema
     Dosage: UNK
     Route: 003
     Dates: start: 20221219, end: 20230516
  10. ALBUTEROL SULFATE [Concomitant]
     Active Substance: ALBUTEROL SULFATE
     Indication: Chronic obstructive pulmonary disease
     Dosage: UNK
     Route: 055
     Dates: start: 2018
  11. TRAMADOL [Concomitant]
     Active Substance: TRAMADOL
     Indication: Musculoskeletal chest pain
     Dosage: UNK
     Route: 048
     Dates: start: 2020
  12. TRAMADOL [Concomitant]
     Active Substance: TRAMADOL
     Indication: Paraesthesia
  13. AMOXICILLIN [Concomitant]
     Active Substance: AMOXICILLIN
     Indication: Infection prophylaxis
     Dosage: UNK
     Route: 048
     Dates: start: 20221205
  14. PANTOPRAZOLE [Concomitant]
     Active Substance: PANTOPRAZOLE
     Indication: Prophylaxis against gastrointestinal ulcer
     Dosage: UNK
     Route: 048
     Dates: start: 20221128
  15. VALACYCLOVIR HYDROCHLORIDE [Concomitant]
     Active Substance: VALACYCLOVIR HYDROCHLORIDE
     Indication: Infection prophylaxis
     Dosage: UNK
     Route: 048
     Dates: start: 20221129
  16. UMECLIDINIUM BROMIDE\VILANTEROL TRIFENATATE [Concomitant]
     Active Substance: UMECLIDINIUM BROMIDE\VILANTEROL TRIFENATATE
     Indication: Chronic obstructive pulmonary disease
     Dosage: UNK
     Route: 055
     Dates: start: 2020
  17. OXYGEN [Concomitant]
     Active Substance: OXYGEN
     Indication: Oxygen saturation decreased
  18. AUGMENTIN [Concomitant]
     Active Substance: AMOXICILLIN\CLAVULANATE POTASSIUM
     Indication: Pneumonia haemophilus
     Dosage: UNK
     Dates: start: 20230214
  19. LEVOFLOXACIN [Concomitant]
     Active Substance: LEVOFLOXACIN
     Indication: Pneumonia haemophilus
     Dosage: 500 MILLIGRAM
     Route: 048
     Dates: start: 20230228, end: 20230310

REACTIONS (1)
  - Infusion site reaction [Unknown]

NARRATIVE: CASE EVENT DATE: 20230228
